FAERS Safety Report 15736203 (Version 1)
Quarter: 2018Q4

REPORT INFORMATION
  Report Type: Spontaneous
  Country: GB (occurrence: GB)
  Receive Date: 20181218
  Receipt Date: 20181218
  Transmission Date: 20190205
  Serious: Yes (Other)
  Sender: FDA-Public Use
  Company Number: GB-PURDUE-GBR-2018-0062527

PATIENT

DRUGS (2)
  1. MORPHINE SULFATE. [Suspect]
     Active Substance: MORPHINE SULFATE
     Indication: POSTOPERATIVE ANALGESIA
     Dosage: UNK
     Route: 048
  2. MORPHINE [Suspect]
     Active Substance: MORPHINE
     Indication: POSTOPERATIVE ANALGESIA
     Dosage: 20MCG/KG/HR THAT WAS WEANED TO OFF WITHIN 13 HOUR
     Route: 065

REACTIONS (4)
  - Grunting [Unknown]
  - Tachycardia [Unknown]
  - Drug withdrawal syndrome [Unknown]
  - Tachypnoea [Unknown]
